FAERS Safety Report 7973954-4 (Version None)
Quarter: 2011Q4

REPORT INFORMATION
  Report Type: 
  Country: None (occurrence: None)
  Receive Date: 20111213
  Receipt Date: 20111206
  Transmission Date: 20120403
  Serious: Yes (Death, Hospitalization)
  Sender: FDA-Public Use
  Company Number: US-GLAXOSMITHKLINE-A0808735A

PATIENT
  Age: 74 Year
  Sex: Male
  Weight: 56.8 kg

DRUGS (6)
  1. CLONIDINE [Concomitant]
  2. GLUCOPHAGE [Concomitant]
  3. LISINOPRIL [Concomitant]
  4. HYDROCHLOROTHIAZIDE [Concomitant]
  5. AVANDIA [Suspect]
     Indication: DIABETES MELLITUS
     Dosage: 4MG PER DAY
     Route: 048
     Dates: start: 20050128, end: 20070530
  6. PROTONIX [Concomitant]

REACTIONS (32)
  - CEREBRAL SMALL VESSEL ISCHAEMIC DISEASE [None]
  - FAECAL INCONTINENCE [None]
  - CEREBRAL ATROPHY [None]
  - ACUTE MYOCARDIAL INFARCTION [None]
  - PERIPHERAL ISCHAEMIA [None]
  - HEART INJURY [None]
  - ACTIVITIES OF DAILY LIVING IMPAIRED [None]
  - CEREBROVASCULAR ACCIDENT [None]
  - MULTI-ORGAN FAILURE [None]
  - NEUROPATHY PERIPHERAL [None]
  - CEREBROVASCULAR DISORDER [None]
  - CARDIAC FAILURE CONGESTIVE [None]
  - SINUS BRADYCARDIA [None]
  - CAROTID ARTERY STENOSIS [None]
  - ARTERIOSCLEROSIS [None]
  - VASCULAR GRAFT [None]
  - FEMORAL ARTERY OCCLUSION [None]
  - CORONARY ARTERY DISEASE [None]
  - ANAEMIA [None]
  - URINARY INCONTINENCE [None]
  - CONVULSION [None]
  - CARDIOGENIC SHOCK [None]
  - RENAL FAILURE ACUTE [None]
  - CARDIAC ARREST [None]
  - HYPERTENSION [None]
  - THALAMIC INFARCTION [None]
  - ISCHAEMIC CEREBRAL INFARCTION [None]
  - AORTIC STENOSIS [None]
  - EMBOLIC STROKE [None]
  - PERIPHERAL VASCULAR DISORDER [None]
  - RESPIRATORY FAILURE [None]
  - COLLATERAL CIRCULATION [None]
